FAERS Safety Report 8923520 (Version 1)
Quarter: 2012Q4

REPORT INFORMATION
  Report Type: 
  Country: FR (occurrence: FR)
  Receive Date: 20121123
  Receipt Date: 20121123
  Transmission Date: 20130627
  Serious: Yes (Hospitalization)
  Sender: FDA-Public Use
  Company Number: FR-BRISTOL-MYERS SQUIBB COMPANY-17132119

PATIENT
  Age: 53 Year
  Sex: Male

DRUGS (2)
  1. ELISOR TABS 20 MG [Suspect]
     Indication: DYSLIPIDAEMIA
     Dates: start: 20120901, end: 20120903
  2. MOPRAL [Suspect]
     Route: 048
     Dates: start: 20120823, end: 20120921

REACTIONS (1)
  - Lichenoid keratosis [Recovering/Resolving]
